FAERS Safety Report 13729073 (Version 1)
Quarter: 2017Q3

REPORT INFORMATION
  Report Type: Spontaneous
  Country: JP (occurrence: JP)
  Receive Date: 20170707
  Receipt Date: 20170707
  Transmission Date: 20171127
  Serious: Yes (Other)
  Sender: FDA-Public Use
  Company Number: JP-SUN PHARMACEUTICAL INDUSTRIES LTD-2017RR-144687

PATIENT
  Age: 81 Year
  Sex: Female

DRUGS (4)
  1. GIMERACIL, OTERACIL POTASSIUM, TEGAFUR [Suspect]
     Active Substance: GIMERACIL\OTERACIL\TEGAFUR
     Indication: METASTASES TO LYMPH NODES
     Dosage: 80 MG/BODY DAYS 1 TO 14, 4 CYCLES
     Route: 065
  2. CARBOPLATIN. [Suspect]
     Active Substance: CARBOPLATIN
     Indication: SQUAMOUS CELL CARCINOMA OF LUNG
     Dosage: AUC 5, 290 MG/BODY DAY 1, 4 CYCLES
     Route: 065
  3. CARBOPLATIN. [Suspect]
     Active Substance: CARBOPLATIN
     Indication: METASTASES TO LYMPH NODES
     Dosage: AUC 5, 290 MG/BODY DAY 1, 4 CYCLES
     Route: 065
  4. GIMERACIL, OTERACIL POTASSIUM, TEGAFUR [Suspect]
     Active Substance: GIMERACIL\OTERACIL\TEGAFUR
     Indication: SQUAMOUS CELL CARCINOMA OF LUNG
     Dosage: 80 MG/BODY DAYS 1 TO 14, 4 CYCLES
     Route: 065

REACTIONS (2)
  - Decreased appetite [Unknown]
  - Anaemia [Unknown]
